FAERS Safety Report 9013290 (Version 1)
Quarter: 2013Q1

REPORT INFORMATION
  Report Type: Spontaneous
  Country: US (occurrence: None)
  Receive Date: 20130107
  Receipt Date: 20130107
  Transmission Date: 20140127
  Serious: Yes (Hospitalization)
  Sender: FDA-Public Use
  Company Number: None

PATIENT
  Age: 54 Year
  Sex: Male
  Weight: 74.39 kg

DRUGS (1)
  1. XARELTO 20 MG [Suspect]
     Indication: PULMONARY EMBOLISM
     Route: 048
     Dates: start: 20121112

REACTIONS (5)
  - Dizziness [None]
  - Cold sweat [None]
  - Heart rate irregular [None]
  - Dysphagia [None]
  - Dyspnoea [None]
